FAERS Safety Report 7418680-5 (Version None)
Quarter: 2011Q2

REPORT INFORMATION
  Report Type: 
  Country: None (occurrence: None)
  Receive Date: 20110415
  Receipt Date: 20110322
  Transmission Date: 20111010
  Serious: Yes (Hospitalization, Other)
  Sender: FDA-Public Use
  Company Number: US-BAYER-201041795NA

PATIENT
  Age: 47 Year
  Sex: Female
  Weight: 72.562 kg

DRUGS (15)
  1. ASCORBIC ACID [Concomitant]
     Indication: SUPPLEMENTATION THERAPY
     Dosage: UNK UNK, QD
  2. B-150 [Concomitant]
     Indication: SUPPLEMENTATION THERAPY
  3. SYNTHROID [Concomitant]
     Indication: THYROID DISORDER
     Dosage: UNK UNK, QD
  4. ALPRAZOLAM [Concomitant]
  5. SINGULAIR [Concomitant]
     Dosage: 10 MG, QD
     Route: 048
  6. IBUPROFEN [Concomitant]
     Dosage: 400 MG, BID
     Route: 048
  7. CALCIUM WITH VITAMIN D [Concomitant]
     Indication: SUPPLEMENTATION THERAPY
     Dosage: 1200 MG, QD
  8. TOPROL-XL [Concomitant]
     Indication: ANXIETY
     Dosage: UNK UNK, QD
  9. FISH OIL [Concomitant]
     Indication: SUPPLEMENTATION THERAPY
     Dosage: 2000 IU/L, QD
  10. ZOLOFT [Concomitant]
     Dosage: 50 MG, QD
  11. BENZONATATE [Concomitant]
     Dosage: 100 MG, QD
     Route: 048
  12. FEXOFENADINE [Concomitant]
     Indication: HYPERSENSITIVITY
     Dosage: 180 MG, QD
  13. MULTI-VITAMIN [Concomitant]
     Dosage: UNK UNK, QD
  14. YAZ [Suspect]
     Indication: PREMENSTRUAL SYNDROME
     Route: 048
     Dates: start: 20070301, end: 20070901
  15. RYNEZE TABLETS 8/2.5MG [Concomitant]
     Indication: HYPERSENSITIVITY
     Dosage: UNK UNK, QD

REACTIONS (4)
  - DEEP VEIN THROMBOSIS [None]
  - PAIN IN EXTREMITY [None]
  - CHEST PAIN [None]
  - PULMONARY EMBOLISM [None]
